FAERS Safety Report 7644472 (Version 4)
Quarter: 2013Q2

REPORT INFORMATION
  Report Type: Spontaneous
  Country: FR (occurrence: FR)
  Receive Date: 20101028
  Receipt Date: 20130402
  Transmission Date: 20140414
  Serious: Yes (Death, Other)
  Sender: FDA-Public Use
  Company Number: FR-CELGENEUS-056-50794-10101837

PATIENT
  Sex: 0

DRUGS (2)
  1. VIDAZA [Suspect]
     Indication: MYELODYSPLASTIC SYNDROME
     Dosage: 75 MILLIGRAM/SQ. METER
     Route: 058
  2. VIDAZA [Suspect]
     Indication: ACUTE MYELOID LEUKAEMIA

REACTIONS (10)
  - Death [Fatal]
  - Sepsis [Fatal]
  - Haemorrhage [Fatal]
  - Disease progression [Fatal]
  - Pancytopenia [Unknown]
  - Cerebrovascular accident [Unknown]
  - Hepatic failure [Unknown]
  - Polychondritis [Unknown]
  - Treatment failure [Unknown]
  - No therapeutic response [Unknown]
